FAERS Safety Report 5234233-1 (Version None)
Quarter: 2007Q1

REPORT INFORMATION
  Report Type: 
  Country: None (occurrence: None)
  Receive Date: 20070209
  Receipt Date: 20070129
  Transmission Date: 20070707
  Serious: Yes (Hospitalization, Other)
  Sender: FDA-Public Use
  Company Number: PHRM2007FR00660

PATIENT
  Age: 86 Year
  Sex: Male

DRUGS (4)
  1. BURINEX [Suspect]
     Dosage: 10 MG/DAY
     Route: 048
     Dates: start: 20050101, end: 20061117
  2. MONO-TILDIEM [Concomitant]
     Dates: start: 20060810
  3. HYPERIUM [Concomitant]
     Dates: start: 20051001
  4. ESIDRIX [Suspect]
     Indication: HYPERTENSION
     Dosage: 25 MG, QD
     Route: 048
     Dates: start: 20060810, end: 20061117

REACTIONS (6)
  - BLOOD CREATININE INCREASED [None]
  - CONSTIPATION [None]
  - HYPOKALAEMIA [None]
  - ILEUS [None]
  - RENAL FAILURE ACUTE [None]
  - VOMITING [None]
